FAERS Safety Report 7703420-2 (Version None)
Quarter: 2011Q3

REPORT INFORMATION
  Report Type: 
  Country: None (occurrence: None)
  Receive Date: 20110823
  Receipt Date: 20110823
  Transmission Date: 20111222
  Serious: Yes (Other)
  Sender: FDA-Public Use
  Company Number: None

PATIENT
  Age: 26 Year
  Sex: Male
  Weight: 117.93 kg

DRUGS (12)
  1. TRAMADOL HCL [Concomitant]
     Route: 048
  2. MIRTAZAPINE [Concomitant]
     Indication: DEPRESSION
     Dosage: 1
     Route: 048
  3. CYANOCOBALAMIN [Concomitant]
  4. METOPROLOL SUCCINATE [Concomitant]
     Route: 048
  5. IBUPROFEN [Concomitant]
     Route: 048
  6. OMEPRAZOLE [Concomitant]
     Route: 048
  7. TOPIRAMATE [Concomitant]
  8. SERTRALINE HYDROCHLORIDE [Concomitant]
  9. TOPIRAMATE [Suspect]
     Indication: AFFECTIVE DISORDER
     Dosage: 1
     Route: 048
  10. MIRTAZAPINE [Concomitant]
  11. CYCLOBENZAPRINE HCL [Concomitant]
  12. TEMAZEPAM [Concomitant]
     Route: 048

REACTIONS (2)
  - DIARRHOEA [None]
  - VOMITING [None]
